FAERS Safety Report 24291511 (Version 1)
Quarter: 2024Q3

REPORT INFORMATION
  Report Type: Spontaneous
  Country: US (occurrence: None)
  Receive Date: 20240906
  Receipt Date: 20240906
  Transmission Date: 20241017
  Serious: No
  Sender: DOMPE FARMACEUTICI
  Company Number: US-FARMAPROD-202309-2759

PATIENT
  Age: 61 Year
  Sex: Female

DRUGS (7)
  1. OXERVATE [Suspect]
     Active Substance: CENEGERMIN-BKBJ
     Indication: Neurotrophic keratopathy
     Route: 047
     Dates: start: 20201027, end: 20201228
  2. OXERVATE [Suspect]
     Active Substance: CENEGERMIN-BKBJ
     Route: 047
     Dates: start: 20210118, end: 20210323
  3. OXERVATE [Suspect]
     Active Substance: CENEGERMIN-BKBJ
     Route: 047
     Dates: start: 20230915
  4. OXERVATE [Suspect]
     Active Substance: CENEGERMIN-BKBJ
  5. PREDNISOLONE [Concomitant]
     Active Substance: PREDNISOLONE
     Dosage: 15 MG / 5 ML SOLUTION
  6. CANNABIS SATIVA SUBSP. INDICA TOP [Concomitant]
     Active Substance: CANNABIS SATIVA SUBSP. INDICA TOP
     Dosage: GUMMIES
  7. ARTIFICIAL TEARS [Concomitant]
     Route: 047
     Dates: start: 20230915

REACTIONS (6)
  - Disease progression [Unknown]
  - Eye pain [Unknown]
  - Headache [Unknown]
  - Visual impairment [Unknown]
  - Ocular discomfort [Unknown]
  - Inflammation [Unknown]

NARRATIVE: CASE EVENT DATE: 20230910
